FAERS Safety Report 17371009 (Version 1)
Quarter: 2020Q1

REPORT INFORMATION
  Report Type: Report from Study
  Country: IT (occurrence: IT)
  Receive Date: 20200205
  Receipt Date: 20200205
  Transmission Date: 20200409
  Serious: Yes (Hospitalization)
  Sender: FDA-Public Use
  Company Number: IT-TEVA-2020-IT-1180951

PATIENT
  Age: 76 Year
  Sex: Male
  Weight: 90 kg

DRUGS (7)
  1. ATORVASTATINA AUROBINDO ITALIA 20 MG COMPRESSE RIVESTITE CON FILM [Suspect]
     Active Substance: ATORVASTATIN CALCIUM
     Route: 065
  2. RAMIPRIL ACTAVIS [Suspect]
     Active Substance: RAMIPRIL
     Route: 065
  3. AMIODARONE CLORIDRATO BIOINDUSTRIA LIM 150 MG/3 ML SOLUZIONE INIETTABI [Suspect]
     Active Substance: AMIODARONE HYDROCHLORIDE
     Route: 065
  4. LASIX [Suspect]
     Active Substance: FUROSEMIDE
     Route: 065
  5. SINTROM [Suspect]
     Active Substance: ACENOCOUMAROL
     Indication: ARTERIAL DISORDER
     Dosage: 7.5 MG
     Route: 048
     Dates: start: 20190401, end: 20190802
  6. BISOPROLOLO TEVA 5 MG COMPRESSE [Suspect]
     Active Substance: BISOPROLOL FUMARATE
     Route: 065
  7. EUTIROX 25 MICROGRAMMI COMPRESSE [Suspect]
     Active Substance: LEVOTHYROXINE SODIUM
     Route: 065

REACTIONS (1)
  - Petechiae [Unknown]

NARRATIVE: CASE EVENT DATE: 20190510
